FAERS Safety Report 9918048 (Version 17)
Quarter: 2016Q1

REPORT INFORMATION
  Report Type: Report from Study
  Country: BR (occurrence: BR)
  Receive Date: 20140222
  Receipt Date: 20160210
  Transmission Date: 20160526
  Serious: Yes (Death, Disabling, Other)
  Sender: FDA-Public Use
  Company Number: PHHY2013BR142975

PATIENT
  Age: 78 Year
  Sex: Female
  Weight: 53 kg

DRUGS (43)
  1. SANDOSTATIN LAR DEPOT [Suspect]
     Active Substance: OCTREOTIDE ACETATE
     Indication: HEPATIC NEOPLASM
     Dosage: 1 DF,  EVERY 28 DAYS
     Route: 065
     Dates: start: 2009
  2. ALENDRONATE [Concomitant]
     Active Substance: ALENDRONATE SODIUM
     Indication: OSTEOPOROSIS
     Dosage: 1 DF, QW
     Route: 048
  3. CALCIUM [Concomitant]
     Active Substance: CALCIUM
     Indication: OSTEOPOROSIS
     Dosage: 1 DF, BID
     Route: 065
  4. TELMISARTAN. [Concomitant]
     Active Substance: TELMISARTAN
     Dosage: 2 DF, QD
     Route: 048
  5. AMLODIPINE [Concomitant]
     Active Substance: AMLODIPINE BESYLATE
     Indication: HYPERTENSION
     Dosage: 1 DF, QD
     Route: 065
  6. AMLODIPINE [Concomitant]
     Active Substance: AMLODIPINE BESYLATE
     Dosage: 2 DF, QD
     Route: 065
  7. DIPYRONE [Concomitant]
     Active Substance: DIPYRONE
     Indication: PAIN
     Dosage: UNK OT, PRN
     Route: 065
  8. SANDOSTATIN LAR DEPOT [Suspect]
     Active Substance: OCTREOTIDE ACETATE
     Indication: IMMUNISATION
     Dosage: 1 DF, QMO
     Route: 065
     Dates: start: 201207, end: 201210
  9. OSSOTRAT-D [Concomitant]
     Indication: OSTEOPOROSIS
     Dosage: 2 DF, QD
     Route: 048
     Dates: start: 2010
  10. SELOZOK [Concomitant]
     Active Substance: METOPROLOL SUCCINATE
     Indication: HYPERTENSION
     Dosage: 1 DF (25 MG), BID (1 TABLET IN THE MORNING AND ONE IN THE EVENING)
     Route: 048
  11. SANDOSTATIN LAR DEPOT [Suspect]
     Active Substance: OCTREOTIDE ACETATE
     Indication: PULMONARY MASS
     Dosage: 2 DF, QMO
     Route: 065
     Dates: start: 2011, end: 201210
  12. SANDOSTATIN LAR DEPOT [Suspect]
     Active Substance: OCTREOTIDE ACETATE
     Indication: GASTROINTESTINAL CARCINOMA
     Dosage: 1 DF (20 MG), EVERY 28 DAYS
     Route: 065
     Dates: start: 20130731
  13. ALENDRONATE [Concomitant]
     Active Substance: ALENDRONATE SODIUM
     Dosage: 1 DF (70 MG), QW
     Route: 048
  14. PURAN [Concomitant]
     Active Substance: LEVOTHYROXINE SODIUM
     Dosage: 100 UG, QD (1 DF AT NIGHT)
     Route: 048
     Dates: start: 2010
  15. PURAN [Concomitant]
     Active Substance: LEVOTHYROXINE SODIUM
     Dosage: 125 MG, UNK
     Route: 065
  16. DIMETHICONE. [Concomitant]
     Active Substance: DIMETHICONE
     Indication: FLATULENCE
     Dosage: UNK OT, BID (ONCE OR TWICE DAILY)
     Route: 065
  17. PROLIVE [Concomitant]
     Indication: DYSBACTERIOSIS
     Dosage: 1 DF, PRN (WHEN SHE WAS WITH A PROBLEM)
     Route: 065
  18. LOPERAMIDE [Suspect]
     Active Substance: LOPERAMIDE
     Indication: DIARRHOEA
     Dosage: 2 MG, TID
     Route: 065
     Dates: start: 2007
  19. ALENDRONATE [Concomitant]
     Active Substance: ALENDRONATE SODIUM
     Dosage: 1 DF, QMO
     Route: 065
  20. PURAN [Concomitant]
     Active Substance: LEVOTHYROXINE SODIUM
     Dosage: 80 MG (2 DF), QD
     Route: 065
  21. TELMISARTAN. [Concomitant]
     Active Substance: TELMISARTAN
     Indication: HYPERTENSION
     Dosage: 2 DF, BID (1 TABLET IN THE MORNING AND ONE IN THE EVENING)
     Route: 048
  22. TELMISARTAN. [Concomitant]
     Active Substance: TELMISARTAN
     Dosage: 1 DF (40 MG), BID
     Route: 048
  23. SANDOSTATIN LAR DEPOT [Suspect]
     Active Substance: OCTREOTIDE ACETATE
     Indication: NEUROENDOCRINE TUMOUR
     Dosage: 20 MG, EVERY 28 DAYS
     Route: 030
     Dates: start: 2008
  24. SANDOSTATIN LAR DEPOT [Suspect]
     Active Substance: OCTREOTIDE ACETATE
     Dosage: 20 MG, EVERY 28 DAYS
     Route: 065
  25. SANDOSTATIN LAR DEPOT [Suspect]
     Active Substance: OCTREOTIDE ACETATE
     Dosage: 1 DF (20 MG), QMO
     Route: 065
  26. CALIO [Concomitant]
     Indication: OSTEOPOROSIS
     Route: 065
  27. PURAN [Concomitant]
     Active Substance: LEVOTHYROXINE SODIUM
     Indication: THYROIDECTOMY
     Dosage: 1 DF (25 UG), QD (IN THE MORNING)
     Route: 048
     Dates: start: 2010
  28. CALTRATE WITH VITAMIN D [Concomitant]
     Active Substance: CALCIUM CARBONATE\CHOLECALCIFEROL
     Indication: OSTEOPOROSIS
     Dosage: 2 DF, QD
     Route: 048
     Dates: start: 2008
  29. CALCITRIOL. [Concomitant]
     Active Substance: CALCITRIOL
     Dosage: 2 DF, QD
     Dates: start: 2008
  30. TELMISARTAN. [Concomitant]
     Active Substance: TELMISARTAN
     Dosage: 160 MG, QD
     Route: 048
  31. IMOSEC [Concomitant]
     Active Substance: LOPERAMIDE
     Indication: DIARRHOEA
     Dosage: 3 OT, PRN (SOMETIMES SHE USE 2 OR 3)
     Route: 065
     Dates: start: 2007
  32. SANDOSTATIN LAR DEPOT [Suspect]
     Active Substance: OCTREOTIDE ACETATE
     Dosage: 2 DF, QMO
     Route: 065
  33. OSTRIOL [Suspect]
     Active Substance: CALCITRIOL
     Indication: BLOOD CALCIUM ABNORMAL
     Dosage: 1 DF, Q12H
     Route: 065
     Dates: start: 2008
  34. ESTRIOL [Concomitant]
     Active Substance: ESTRIOL
     Indication: OSTEOPOROSIS
     Dosage: 1 DF, Q12H
     Route: 065
  35. CALCIUM ^SANDOZ^ [Concomitant]
     Active Substance: CALCIUM
     Indication: OSTEOPOROSIS
     Dosage: 1 DF, Q12H
     Route: 065
  36. CALCIUM ^SANDOZ^ [Concomitant]
     Active Substance: CALCIUM
     Indication: GASTROINTESTINAL DISORDER
     Dosage: 1 DF (500 MG), BID (ONCE IN THE MORNING AND ONCE AT NIGHT)
     Route: 048
  37. CALCITRIOL. [Concomitant]
     Active Substance: CALCITRIOL
     Indication: OSTEOPOROSIS
     Dosage: 2 DF, QD
     Route: 048
     Dates: start: 2007
  38. SANDOSTATIN LAR DEPOT [Suspect]
     Active Substance: OCTREOTIDE ACETATE
     Dosage: 1 DF, QMO/ EACH 28 DAYS
     Route: 065
     Dates: start: 20150412
  39. DIASEC [Suspect]
     Active Substance: LOPERAMIDE HYDROCHLORIDE
     Indication: DIARRHOEA
     Dosage: 1 DF, Q8H
     Route: 065
     Dates: start: 2007
  40. CALCITRIOL. [Concomitant]
     Active Substance: CALCITRIOL
     Dosage: 25 MG, UNK
     Route: 048
  41. SELOZOK [Concomitant]
     Active Substance: METOPROLOL SUCCINATE
     Dosage: 0.5 DF, BID (IN THE MORNING AT NIGHT)
     Route: 065
  42. LEVAMLODIPINE [Concomitant]
     Active Substance: LEVAMLODIPINE
     Indication: HYPERTENSION
     Dosage: 1 DF, QD (IN THE MORNING)
     Route: 048
  43. NOVAMILOR [Concomitant]
     Indication: HYPERTENSION
     Dosage: 1 DF (25 MG), QD
     Route: 048

REACTIONS (52)
  - Speech disorder [Unknown]
  - Memory impairment [Unknown]
  - Dizziness [Unknown]
  - Blood pressure increased [Not Recovered/Not Resolved]
  - Injection site reaction [Unknown]
  - Gastrointestinal obstruction [Not Recovered/Not Resolved]
  - Eating disorder [Unknown]
  - Cold sweat [Unknown]
  - Nausea [Unknown]
  - Visual impairment [Not Recovered/Not Resolved]
  - Gastrointestinal pain [Not Recovered/Not Resolved]
  - Confusional state [Unknown]
  - Abdominal pain [Not Recovered/Not Resolved]
  - Weight decreased [Unknown]
  - Body height decreased [Unknown]
  - Anaemia [Unknown]
  - Pain [Not Recovered/Not Resolved]
  - Osteoporosis [Not Recovered/Not Resolved]
  - Depressed mood [Not Recovered/Not Resolved]
  - Blood pressure decreased [Not Recovered/Not Resolved]
  - Spinal fracture [Not Recovered/Not Resolved]
  - Hypoacusis [Not Recovered/Not Resolved]
  - Procedural complication [Not Recovered/Not Resolved]
  - Hypokinesia [Unknown]
  - Malaise [Unknown]
  - Asthenia [Not Recovered/Not Resolved]
  - Constipation [Unknown]
  - Peripheral swelling [Recovering/Resolving]
  - Abdominal adhesions [Unknown]
  - Decreased appetite [Unknown]
  - Vomiting [Unknown]
  - Bone pain [Not Recovered/Not Resolved]
  - Alopecia [Not Recovered/Not Resolved]
  - Gait disturbance [Not Recovered/Not Resolved]
  - Psychiatric symptom [Not Recovered/Not Resolved]
  - Spinal disorder [Unknown]
  - Burns second degree [Not Recovered/Not Resolved]
  - Blister rupture [Not Recovered/Not Resolved]
  - Muscular weakness [Unknown]
  - Bone density decreased [Unknown]
  - Overdose [Not Recovered/Not Resolved]
  - Malignant neoplasm progression [Fatal]
  - Atrophy [Unknown]
  - Diarrhoea [Unknown]
  - Cataract [Not Recovered/Not Resolved]
  - Thermal burn [Not Recovered/Not Resolved]
  - Peripheral coldness [Not Recovered/Not Resolved]
  - Fall [Unknown]
  - Vertigo [Not Recovered/Not Resolved]
  - Blood test abnormal [Not Recovered/Not Resolved]
  - Hypoaesthesia [Not Recovered/Not Resolved]
  - Underweight [Not Recovered/Not Resolved]

NARRATIVE: CASE EVENT DATE: 2012
